FAERS Safety Report 24763317 (Version 2)
Quarter: 2025Q1

REPORT INFORMATION
  Report Type: Spontaneous
  Country: JP (occurrence: JP)
  Receive Date: 20241222
  Receipt Date: 20250107
  Transmission Date: 20250408
  Serious: Yes (Hospitalization, Other)
  Sender: ABBVIE
  Company Number: JP-ABBVIE-5770968

PATIENT
  Age: 19 Year
  Sex: Male

DRUGS (1)
  1. RINVOQ [Suspect]
     Active Substance: UPADACITINIB
     Indication: Colitis ulcerative
     Route: 048

REACTIONS (9)
  - Embolic stroke [Unknown]
  - Immune system disorder [Unknown]
  - Campylobacter gastroenteritis [Recovered/Resolved]
  - Pneumomediastinum [Recovered/Resolved]
  - Colitis ulcerative [Unknown]
  - Bacterial food poisoning [Recovered/Resolved]
  - Mucosal disorder [Unknown]
  - Endocarditis [Recovered/Resolved]
  - Cerebral infarction [Unknown]
